FAERS Safety Report 22016726 (Version 1)
Quarter: 2023Q1

REPORT INFORMATION
  Report Type: Spontaneous
  Country: US (occurrence: US)
  Receive Date: 20230221
  Receipt Date: 20230221
  Transmission Date: 20230417
  Serious: No
  Sender: FDA-Public Use
  Company Number: US-PFIZER INC-202300070402

PATIENT
  Age: 89 Year
  Sex: Female
  Weight: 48.08 kg

DRUGS (3)
  1. PAXLOVID [Suspect]
     Active Substance: NIRMATRELVIR\RITONAVIR
     Indication: COVID-19 treatment
     Dosage: 3 DF, 2X/DAY (300MG; TAKES IT THREE PILLS TWICE PER DAY MORNING AND NIGHT BY MOUTH)
     Route: 048
     Dates: start: 20230211
  2. BENZONATATE [Suspect]
     Active Substance: BENZONATATE
     Dosage: 100 MG, 3X/DAY
     Route: 048
     Dates: start: 20230211
  3. AMLODIPINE [Concomitant]
     Active Substance: AMLODIPINE BESYLATE
     Dosage: UNK

REACTIONS (2)
  - Weight decreased [Unknown]
  - Decreased appetite [Unknown]
